FAERS Safety Report 8510446-8 (Version None)
Quarter: 2012Q3

REPORT INFORMATION
  Report Type: 
  Country: None (occurrence: None)
  Receive Date: 20120715
  Receipt Date: 20120704
  Transmission Date: 20120928
  Serious: Yes (Life-Threatening)
  Sender: FDA-Public Use
  Company Number: IT-TEVA-346805ISR

PATIENT
  Sex: Female

DRUGS (5)
  1. CARBOPLATIN [Suspect]
     Indication: OVARIAN CANCER RECURRENT
     Dosage: 450 MILLIGRAM;
     Route: 042
     Dates: start: 20120612, end: 20120703
  2. RANITIDINA CLORIDRATO [Concomitant]
     Dosage: 50 MILLIGRAM;
     Route: 042
     Dates: start: 20120612, end: 20120703
  3. PACLITAXEL MYLAN GENERICS [Concomitant]
     Dosage: 260 MILLIGRAM;
     Route: 042
     Dates: start: 20120612, end: 20120703
  4. ONDANSETRONE CLORIDRATO [Concomitant]
     Dosage: 8 MILLIGRAM;
     Route: 042
     Dates: start: 20120612, end: 20120703
  5. DESAMETASONE [Concomitant]
     Dosage: 8 MILLIGRAM;
     Route: 042
     Dates: start: 20120612, end: 20120703

REACTIONS (2)
  - HYPOTENSION [None]
  - LOSS OF CONSCIOUSNESS [None]
